FAERS Safety Report 8578613-5 (Version None)
Quarter: 2012Q3

REPORT INFORMATION
  Report Type: 
  Country: None (occurrence: None)
  Receive Date: 20120801
  Receipt Date: 20120801
  Transmission Date: 20120928
  Serious: Yes (Other)
  Sender: FDA-Public Use
  Company Number: None

PATIENT
  Sex: Male

DRUGS (1)
  1. XELODA [Suspect]
     Indication: COLON CANCER
     Dosage: 500MG 1500MG BID FOR 14 DAYS PO
     Route: 048
     Dates: start: 20120517

REACTIONS (1)
  - THROMBOSIS [None]
